FAERS Safety Report 8852600 (Version 2)
Quarter: 2013Q1

REPORT INFORMATION
  Report Type: Spontaneous
  Country: JP (occurrence: JP)
  Receive Date: 20121022
  Receipt Date: 20130107
  Transmission Date: 20140127
  Serious: Yes (Life-Threatening, Hospitalization, Other)
  Sender: FDA-Public Use
  Company Number: JP-ROCHE-1145501

PATIENT
  Age: 74 Year
  Sex: Male

DRUGS (22)
  1. RITUXIMAB [Suspect]
     Indication: B-CELL LYMPHOMA
     Dosage: DAY 1
     Route: 042
  2. RITUXIMAB [Suspect]
     Route: 042
     Dates: start: 20031015
  3. RITUXIMAB [Suspect]
     Route: 042
     Dates: start: 20031111
  4. RITUXIMAB [Suspect]
     Route: 042
     Dates: start: 20031208
  5. RITUXIMAB [Suspect]
     Route: 042
     Dates: start: 20040114
  6. PIRARUBICIN [Suspect]
     Indication: B-CELL LYMPHOMA
     Route: 065
  7. CYCLOPHOSPHAMIDE [Suspect]
     Indication: B-CELL LYMPHOMA
     Route: 065
  8. VINCRISTINE [Suspect]
     Indication: B-CELL LYMPHOMA
     Route: 065
  9. PREDNISOLONE [Suspect]
     Indication: B-CELL LYMPHOMA
     Route: 065
  10. METHOTREXATE [Suspect]
     Indication: B-CELL LYMPHOMA
     Route: 065
  11. CLADRIBINE [Suspect]
     Indication: B-CELL LYMPHOMA
     Dosage: ON DAYS 2-6
     Route: 042
  12. RIBALL [Concomitant]
     Indication: GOUT
     Route: 048
     Dates: start: 20030923, end: 20040628
  13. TAKEPRON [Concomitant]
     Indication: GASTRIC DISORDER
     Route: 048
     Dates: start: 20031112, end: 20031127
  14. GASLON N [Concomitant]
     Route: 048
     Dates: start: 20030922, end: 20040628
  15. DIFLUCAN (FLUCONAZOL) [Concomitant]
     Indication: INFECTION PROPHYLAXIS
     Route: 048
     Dates: start: 20031128, end: 20040310
  16. MAGMITT [Concomitant]
     Indication: CONSTIPATION
     Route: 048
     Dates: start: 20031006, end: 20040628
  17. BAKTAR [Concomitant]
     Indication: INFECTION PROPHYLAXIS
     Route: 048
     Dates: start: 20030922, end: 20040308
  18. ISCOTIN [Concomitant]
     Indication: INFECTION PROPHYLAXIS
     Route: 048
     Dates: start: 20030922, end: 20040310
  19. NEUQUINON [Concomitant]
     Indication: CARDIOTOXICITY
     Route: 048
     Dates: start: 20030922, end: 20040628
  20. URSO [Concomitant]
     Route: 048
     Dates: start: 20031010, end: 20040628
  21. LASIX [Concomitant]
     Route: 048
     Dates: start: 20031126, end: 20040628
  22. CLADRIBINE [Concomitant]
     Indication: LYMPHOMA
     Route: 042
     Dates: start: 20031016, end: 20040403

REACTIONS (3)
  - Sepsis [Not Recovered/Not Resolved]
  - Pancytopenia [Not Recovered/Not Resolved]
  - Myelodysplastic syndrome [Not Recovered/Not Resolved]
